FAERS Safety Report 11423112 (Version 1)
Quarter: 2015Q3

REPORT INFORMATION
  Report Type: Spontaneous
  Country: US (occurrence: US)
  Receive Date: 20150827
  Receipt Date: 20150827
  Transmission Date: 20151125
  Serious: Yes (Other)
  Sender: FDA-Public Use
  Company Number: US-PROCTER_AND_GAMBLE-CIO15050996

PATIENT
  Age: 64 Year
  Sex: Female

DRUGS (2)
  1. CREST PRO-HEALTH (STANNOUS FLUORIDE) [Suspect]
     Active Substance: STANNOUS FLUORIDE
     Dosage: PEA SIZE, 2-3 TIMES A DAY
     Route: 002
     Dates: end: 20150812
  2. CREST PRO-HEALTH HEALTHY FRESH [Suspect]
     Active Substance: STANNOUS FLUORIDE
     Dosage: PEA SIZE, 2-3 TIMES A DAY
     Route: 002
     Dates: end: 20150812

REACTIONS (5)
  - Stomatitis [Not Recovered/Not Resolved]
  - Dental discomfort [Not Recovered/Not Resolved]
  - Oral pain [Not Recovered/Not Resolved]
  - Toothache [Not Recovered/Not Resolved]
  - Sensitivity of teeth [Not Recovered/Not Resolved]

NARRATIVE: CASE EVENT DATE: 2015
